FAERS Safety Report 22605665 (Version 1)
Quarter: 2023Q2

REPORT INFORMATION
  Report Type: Spontaneous
  Country: IE (occurrence: IE)
  Receive Date: 20230615
  Receipt Date: 20230615
  Transmission Date: 20230722
  Serious: Yes (Other)
  Sender: FDA-Public Use
  Company Number: None

PATIENT
  Age: 70 Year
  Sex: Female

DRUGS (15)
  1. CLINDAMYCIN HYDROCHLORIDE [Suspect]
     Active Substance: CLINDAMYCIN HYDROCHLORIDE
     Indication: Bacterial infection
     Dosage: 150 MG, 4X/DAY  (FREQ: 6 H; TAKE ONE (150 MG) TABLETS FOUR TIMES DAILY, DAILY DOSE: 600MG)
     Route: 048
     Dates: end: 20230519
  2. IXPRIM [Concomitant]
     Active Substance: ACETAMINOPHEN\TRAMADOL HYDROCHLORIDE
     Indication: Pain
     Dosage: TAKE AS REQUIRED
     Route: 048
     Dates: start: 20230512
  3. CIPROTAN [CITALOPRAM HYDROBROMIDE] [Concomitant]
     Indication: Anxiety
     Dosage: ONE DAILY
     Dates: start: 20230512
  4. CIPROTAN [CITALOPRAM HYDROBROMIDE] [Concomitant]
     Indication: Depression
  5. MIRAMEL [Concomitant]
     Indication: Parkinson^s disease
     Dosage: TAKE SIX TABLETS AT NIGHT
     Route: 048
     Dates: start: 20230512
  6. PRAMIPEXOLE [Concomitant]
     Active Substance: PRAMIPEXOLE
     Indication: Restless legs syndrome
  7. LANSOPRAZOLE [Concomitant]
     Active Substance: LANSOPRAZOLE
     Indication: Prophylaxis
     Dosage: FREQ:24 H;TAKE ONE DAILY
     Route: 048
     Dates: start: 20230512
  8. CYCLIZINE HYDROCHLORIDE [Concomitant]
     Active Substance: CYCLIZINE HYDROCHLORIDE
     Indication: Nausea
     Dosage: FREQ:8 H;ONE THREE TIMES DAILY AS REQUIRED
     Dates: start: 20230512
  9. NEUROSTIL [Concomitant]
     Dosage: FREQ:8 H;TAKE ONE CAPSULE THREE TIMES DAILY
     Route: 048
     Dates: start: 20230512
  10. VENTOLIN [Concomitant]
     Active Substance: ALBUTEROL SULFATE
     Indication: Asthma
     Dosage: ONE OR TWO PUFFS UP TO FOUR TIMES DAILY
     Dates: start: 20230512
  11. VENTOLIN [Concomitant]
     Active Substance: ALBUTEROL SULFATE
     Indication: Chronic obstructive pulmonary disease
  12. MIRTAZAPINE [Concomitant]
     Active Substance: MIRTAZAPINE
     Indication: Sleep disorder
     Dosage: ONE AT NIGHT
     Route: 048
     Dates: start: 20230512
  13. QUININE SULFATE [Concomitant]
     Active Substance: QUININE SULFATE
     Indication: Muscle spasms
     Dosage: TAKE ONE AT NIGHT
     Route: 048
     Dates: start: 20230512
  14. GLYCOPYRRONIUM\INDACATEROL [Concomitant]
     Active Substance: GLYCOPYRRONIUM\INDACATEROL
     Indication: Chronic obstructive pulmonary disease
     Dosage: ONE PUFF DAILY
     Dates: start: 20230505
  15. ALTAVITA D3 [Concomitant]
     Indication: Vitamin D
     Dosage: ONE CAPSULE MONTHLY
     Route: 048
     Dates: start: 20230512

REACTIONS (3)
  - Swelling [Unknown]
  - Peripheral swelling [Unknown]
  - Vomiting [Unknown]

NARRATIVE: CASE EVENT DATE: 20230521
